FAERS Safety Report 5534639-7 (Version None)
Quarter: 2007Q4

REPORT INFORMATION
  Report Type: 
  Country: None (occurrence: None)
  Receive Date: 20071205
  Receipt Date: 20071128
  Transmission Date: 20080405
  Serious: Yes (Disabling)
  Sender: FDA-Public Use
  Company Number: PHBS2007JP20370

PATIENT
  Age: 60 Year
  Sex: Female

DRUGS (1)
  1. TEGRETOL [Suspect]
     Indication: PAIN
     Route: 048

REACTIONS (2)
  - MUSCULAR WEAKNESS [None]
  - WHEELCHAIR USER [None]
